FAERS Safety Report 6581889-7 (Version None)
Quarter: 2010Q1

REPORT INFORMATION
  Report Type: 
  Country: None (occurrence: None)
  Receive Date: 20100212
  Receipt Date: 20100212
  Transmission Date: 20100710
  Serious: Yes (Life-Threatening, Hospitalization)
  Sender: FDA-Public Use
  Company Number: None

PATIENT
  Age: 52 Year
  Sex: Male
  Weight: 79.8 kg

DRUGS (1)
  1. HYDROCODONE BITARTRATE AND ACETAMINOPHEN [Suspect]
     Indication: PAIN
     Dosage: 10000 MG ONCE PO
     Route: 048
     Dates: start: 20000423, end: 20091022

REACTIONS (4)
  - ABDOMINAL PAIN UPPER [None]
  - DRUG TOXICITY [None]
  - HEPATIC ENZYME INCREASED [None]
  - NAUSEA [None]
